FAERS Safety Report 16130453 (Version 1)
Quarter: 2019Q1

REPORT INFORMATION
  Report Type: Spontaneous
  Country: IT (occurrence: IT)
  Receive Date: 20190328
  Receipt Date: 20190328
  Transmission Date: 20190418
  Serious: Yes (Life-Threatening)
  Sender: FDA-Public Use
  Company Number: IT-MYLANLABS-2019M1028073

PATIENT
  Age: 61 Year
  Sex: Male

DRUGS (2)
  1. CARBOPLATINO [Concomitant]
     Active Substance: CARBOPLATIN
     Dosage: 710 MILLIGRAM
     Route: 042
  2. PACLITAXEL. [Suspect]
     Active Substance: PACLITAXEL
     Indication: PRODUCT USED FOR UNKNOWN INDICATION
     Dosage: 350 MILLIGRAM
     Route: 042
     Dates: start: 20080407, end: 20080428

REACTIONS (6)
  - Cardiac arrest [Not Recovered/Not Resolved]
  - Coronary artery occlusion [Not Recovered/Not Resolved]
  - Myocardial infarction [Not Recovered/Not Resolved]
  - Dyspnoea [Not Recovered/Not Resolved]
  - Acute myocardial infarction [Unknown]
  - Cyanosis [Not Recovered/Not Resolved]

NARRATIVE: CASE EVENT DATE: 20080428
